FAERS Safety Report 9717771 (Version 1)
Quarter: 2013Q4

REPORT INFORMATION
  Report Type: Spontaneous
  Country: RU (occurrence: RU)
  Receive Date: 20131127
  Receipt Date: 20131127
  Transmission Date: 20140711
  Serious: Yes (Hospitalization, Other)
  Sender: FDA-Public Use
  Company Number: RU-JNJFOC-20131114579

PATIENT
  Age: 23 Year
  Sex: Male
  Weight: 73 kg

DRUGS (3)
  1. SIMPONI [Suspect]
     Indication: ANKYLOSING SPONDYLITIS
     Route: 058
     Dates: start: 20130912, end: 20130912
  2. MELOXICAM [Concomitant]
     Route: 065
  3. CEFOTAXIME [Concomitant]
     Route: 065

REACTIONS (2)
  - Osteomyelitis [Not Recovered/Not Resolved]
  - Condition aggravated [Not Recovered/Not Resolved]
